FAERS Safety Report 24379944 (Version 1)
Quarter: 2024Q3

REPORT INFORMATION
  Report Type: Spontaneous
  Country: DE (occurrence: DE)
  Receive Date: 20240930
  Receipt Date: 20240930
  Transmission Date: 20241017
  Serious: Yes (Other)
  Sender: ELI LILLY AND CO
  Company Number: DE-DCGMA-24203923

PATIENT
  Age: 19 Year
  Sex: Male
  Weight: 100 kg

DRUGS (2)
  1. OMVOH [Suspect]
     Active Substance: MIRIKIZUMAB-MRKZ
     Indication: Colitis ulcerative
     Dosage: 300 MG, OTHER (EVERY 28 DAYS, DAILY DOSE; ZWEITE INFUSION AM 09.07.2024)
     Route: 042
     Dates: start: 20240611
  2. BUDESONIDE [Concomitant]
     Active Substance: BUDESONIDE
     Indication: Colitis ulcerative
     Dosage: 9 MG, OTHER (8 WEEKS)
     Route: 048

REACTIONS (2)
  - Haematoma [Recovered/Resolved]
  - Thrombocytopenia [Recovered/Resolved]

NARRATIVE: CASE EVENT DATE: 20240806
